FAERS Safety Report 11645338 (Version 1)
Quarter: 2015Q4

REPORT INFORMATION
  Report Type: Spontaneous
  Country: US (occurrence: None)
  Receive Date: 20151020
  Receipt Date: 20151020
  Transmission Date: 20160304
  Serious: Yes (Other)
  Sender: FDA-Public Use
  Company Number: ADR-2015-00076

PATIENT
  Age: 60 Year
  Sex: Male

DRUGS (1)
  1. LIORESAL [Suspect]
     Active Substance: BACLOFEN
     Indication: MUSCLE SPASTICITY
     Dosage: 408.6 MCG/DAY

REACTIONS (5)
  - Musculoskeletal stiffness [None]
  - Muscle atrophy [None]
  - Fall [None]
  - Muscle tightness [None]
  - Drug withdrawal syndrome [None]
